FAERS Safety Report 15470261 (Version 1)
Quarter: 2018Q4

REPORT INFORMATION
  Report Type: Spontaneous
  Country: US (occurrence: US)
  Receive Date: 20181005
  Receipt Date: 20181005
  Transmission Date: 20190205
  Serious: No
  Sender: FDA-Public Use
  Company Number: US-PERRIGO-17US027844

PATIENT
  Age: 9 Year
  Sex: Female

DRUGS (1)
  1. CHILDRENS CETIRIZINE HYDROCHLORIDE ALLERGY [Suspect]
     Active Substance: CETIRIZINE HYDROCHLORIDE
     Indication: PRODUCT USED FOR UNKNOWN INDICATION
     Dosage: 10 MG, THEN 15 MG
     Route: 048
     Dates: start: 20171026, end: 20171026

REACTIONS (2)
  - Accidental overdose [Recovered/Resolved]
  - Wrong product administered [Recovered/Resolved]

NARRATIVE: CASE EVENT DATE: 20171026
